FAERS Safety Report 5387532-7 (Version None)
Quarter: 2007Q3

REPORT INFORMATION
  Report Type: 
  Country: None (occurrence: None)
  Receive Date: 20070712
  Receipt Date: 20070628
  Transmission Date: 20080115
  Serious: Yes (Other)
  Sender: FDA-Public Use
  Company Number: 032-109

PATIENT
  Sex: Female

DRUGS (1)
  1. TEVETEN [Suspect]
     Dosage: 600 MG PO
     Route: 048

REACTIONS (2)
  - GAIT DISTURBANCE [None]
  - MUSCLE SPASTICITY [None]
